FAERS Safety Report 5987184-9 (Version None)
Quarter: 2008Q4

REPORT INFORMATION
  Report Type: 
  Country: None (occurrence: None)
  Receive Date: 20081203
  Receipt Date: 20081120
  Transmission Date: 20090506
  Serious: Yes (Other)
  Sender: FDA-Public Use
  Company Number: CERZ-1000299

PATIENT
  Age: 56 Year
  Weight: 55 kg

DRUGS (8)
  1. CEREZYME [Suspect]
     Indication: GAUCHER'S DISEASE
     Dosage: 3200 U, Q2W, INTRAVENOUS
     Route: 042
     Dates: start: 20000101
  2. PLAVIX [Concomitant]
  3. FONZYLANE (BUFLOMEDIL HYDROCHLORIDE) [Concomitant]
  4. ZOCOR [Concomitant]
  5. XANAX [Concomitant]
  6. PAROXETINE HYDROCHLORIDE [Concomitant]
  7. NITRIDERM (GLYCERYL TRINITRATE) [Concomitant]
  8. ANTIHYPERTENSIVES [Concomitant]

REACTIONS (2)
  - CONDITION AGGRAVATED [None]
  - HYPERTENSION [None]
